FAERS Safety Report 14382938 (Version 1)
Quarter: 2018Q1

REPORT INFORMATION
  Report Type: Spontaneous
  Country: GB (occurrence: GB)
  Receive Date: 20180114
  Receipt Date: 20180114
  Transmission Date: 20180509
  Serious: Yes (Other)
  Sender: FDA-Public Use
  Company Number: GB-TEVA-2018-GB-843666

PATIENT
  Age: 46 Year
  Sex: Female

DRUGS (2)
  1. PREDNISOLONE. [Suspect]
     Active Substance: PREDNISOLONE
     Indication: EYE DISORDER
     Dosage: 20 MILLIGRAM DAILY;
     Route: 048
  2. PREDNISOLONE. [Suspect]
     Active Substance: PREDNISOLONE
     Indication: EYE DISORDER
     Dosage: 500 MILLIGRAM DAILY;
     Route: 042

REACTIONS (2)
  - Catatonia [Recovered/Resolved]
  - Psychotic disorder [Recovered/Resolved]
